FAERS Safety Report 9369289 (Version 1)
Quarter: 2013Q2

REPORT INFORMATION
  Report Type: Spontaneous
  Country: GB (occurrence: GB)
  Receive Date: 20130626
  Receipt Date: 20130626
  Transmission Date: 20140414
  Serious: Yes (Other)
  Sender: FDA-Public Use
  Company Number: GB-ACCORD-018273

PATIENT
  Age: 58 Year
  Sex: Male
  Weight: 109 kg

DRUGS (6)
  1. SIMVASTATIN [Suspect]
     Indication: MYOCARDIAL INFARCTION
     Route: 048
     Dates: start: 20121023, end: 20121207
  2. PERINDOPRIL [Concomitant]
  3. ASPIRIN [Concomitant]
  4. ATORVASTATIN [Concomitant]
  5. OMACOR [Concomitant]
  6. LOSARTAN POTASSIUM [Concomitant]

REACTIONS (2)
  - Muscle injury [Not Recovered/Not Resolved]
  - Pain [Recovering/Resolving]
